FAERS Safety Report 8004483-X (Version None)
Quarter: 2011Q4

REPORT INFORMATION
  Report Type: 
  Country: None (occurrence: None)
  Receive Date: 20111221
  Receipt Date: 20111221
  Transmission Date: 20120403
  Serious: Yes (Hospitalization)
  Sender: FDA-Public Use
  Company Number: None

PATIENT
  Sex: Male
  Weight: 12.6 kg

DRUGS (4)
  1. DALTEPARIN (LMWH) [Concomitant]
  2. CARBOPLATIN [Suspect]
     Dosage: 952 MG
  3. MELPHALAN HYDROCHLORIDE [Suspect]
     Dosage: 117.6 MG
  4. ETOPOSIDE [Suspect]
     Dosage: 757.2 MG

REACTIONS (20)
  - CANDIDA TEST POSITIVE [None]
  - GASTROINTESTINAL MOTILITY DISORDER [None]
  - MULTIPLE-DRUG RESISTANCE [None]
  - INTESTINAL HAEMORRHAGE [None]
  - THROMBOCYTOPENIA [None]
  - HEPATIC ENCEPHALOPATHY [None]
  - RENAL TUBULAR DISORDER [None]
  - MUCOSAL INFLAMMATION [None]
  - OVERGROWTH BACTERIAL [None]
  - COMA [None]
  - CEREBRAL HAEMORRHAGE [None]
  - NEUROLOGICAL SYMPTOM [None]
  - CONTINUOUS HAEMODIAFILTRATION [None]
  - LEUKOPENIA [None]
  - GASTROINTESTINAL MUCOSAL NECROSIS [None]
  - HYPERAMMONAEMIA [None]
  - EPILEPSY [None]
  - RESPIRATORY DISORDER [None]
  - FEBRILE NEUTROPENIA [None]
  - SUBILEUS [None]
